FAERS Safety Report 24624130 (Version 1)
Quarter: 2024Q4

REPORT INFORMATION
  Report Type: Spontaneous
  Country: US (occurrence: None)
  Receive Date: 20241115
  Receipt Date: 20241115
  Transmission Date: 20250114
  Serious: Yes (Hospitalization)
  Sender: Public
  Company Number: None

PATIENT
  Age: 79 Year
  Sex: Male

DRUGS (1)
  1. TRASTUZUMAB [Suspect]
     Active Substance: TRASTUZUMAB
     Indication: Neoplasm malignant

REACTIONS (8)
  - Heart failure with reduced ejection fraction [None]
  - Nausea [None]
  - Vomiting [None]
  - Hypotension [None]
  - Cellulitis [None]
  - Hypertensive emergency [None]
  - Acute respiratory distress syndrome [None]
  - Hypoxia [None]

NARRATIVE: CASE EVENT DATE: 20240812
